FAERS Safety Report 25766129 (Version 1)
Quarter: 2025Q3

REPORT INFORMATION
  Report Type: Spontaneous
  Country: US (occurrence: US)
  Receive Date: 20250905
  Receipt Date: 20250905
  Transmission Date: 20251020
  Serious: No
  Sender: DOMPE FARMACEUTICI
  Company Number: US-FARMAPROD-202408-2853

PATIENT
  Sex: Female

DRUGS (6)
  1. OXERVATE [Suspect]
     Active Substance: CENEGERMIN-BKBJ
     Indication: Neurotrophic keratopathy
     Route: 047
     Dates: start: 20240711
  2. MINERALS\VITAMINS [Concomitant]
     Active Substance: MINERALS\VITAMINS
  3. VITAMIN D2 [Concomitant]
     Active Substance: ERGOCALCIFEROL
  4. METFORMIN HYDROCHLORIDE [Concomitant]
     Active Substance: METFORMIN HYDROCHLORIDE
  5. FUROSEMIDE [Concomitant]
     Active Substance: FUROSEMIDE
  6. LOSARTAN POTASSIUM [Concomitant]
     Active Substance: LOSARTAN POTASSIUM

REACTIONS (1)
  - Eye pain [Unknown]
